FAERS Safety Report 8707482 (Version 2)
Quarter: 2013Q4

REPORT INFORMATION
  Report Type: Spontaneous
  Country: US (occurrence: US)
  Receive Date: 20120804
  Receipt Date: 20131101
  Transmission Date: 20140711
  Serious: No
  Sender: FDA-Public Use
  Company Number: US-009507513-1207USA009762

PATIENT
  Sex: 0

DRUGS (10)
  1. ZOCOR [Suspect]
     Dosage: 80 MG, EVERY EVENING
     Route: 048
  2. TIKOSYN [Suspect]
     Dosage: 250 MICROGRAM, BID
     Route: 048
  3. TOPROL XL TABLETS [Suspect]
     Dosage: 50 MG, BID
     Route: 048
  4. THIAMINE [Suspect]
     Route: 048
  5. ASPIRIN [Suspect]
     Dosage: 81 MG, QD
     Route: 048
  6. WARFARIN SODIUM [Suspect]
     Dosage: AS INSTRUCTED
     Route: 048
  7. ENALAPRIL MALEATE [Suspect]
     Dosage: 5 MG, BID
     Route: 048
  8. CYANOCOBALAMIN [Suspect]
     Route: 048
  9. OMEPRAZOLE [Suspect]
     Dosage: 20 MG, QD
     Route: 048
  10. COLCHICINE [Suspect]
     Dosage: 0.6 MG, BID
     Route: 048

REACTIONS (3)
  - Gastroenteritis viral [Unknown]
  - Dizziness [Unknown]
  - Nausea [Unknown]
